FAERS Safety Report 10211173 (Version 1)
Quarter: 2014Q2

REPORT INFORMATION
  Report Type: Spontaneous
  Country: US (occurrence: None)
  Receive Date: 20140530
  Receipt Date: 20140530
  Transmission Date: 20141212
  Serious: Yes (Life-Threatening, Hospitalization, Disabling, Other)
  Sender: FDA-Public Use
  Company Number: None

PATIENT
  Age: 26 Year
  Sex: Female
  Weight: 56.7 kg

DRUGS (1)
  1. MIRENA [Suspect]

REACTIONS (6)
  - Ectopic pregnancy [None]
  - Pregnancy with contraceptive device [None]
  - Infertility [None]
  - Emotional disorder [None]
  - Scar [None]
  - Exposure during pregnancy [None]
